FAERS Safety Report 20373979 (Version 1)
Quarter: 2022Q1

REPORT INFORMATION
  Report Type: Spontaneous
  Country: US (occurrence: None)
  Receive Date: 20220124
  Receipt Date: 20220124
  Transmission Date: 20220423
  Serious: Yes (Other)
  Sender: FDA-Public Use
  Company Number: None

PATIENT
  Age: 88 Year
  Sex: Female
  Weight: 58 kg

DRUGS (2)
  1. DARATUMUMAB [Suspect]
     Active Substance: DARATUMUMAB
     Indication: Plasma cell myeloma
     Dosage: FREQUENCY : MONTHLY;?
     Route: 058
     Dates: start: 20211222
  2. LENALIDOMIDE [Suspect]
     Active Substance: LENALIDOMIDE
     Indication: Plasma cell myeloma
     Dosage: OTHER FREQUENCY : 21/7;?
     Route: 048

REACTIONS (4)
  - Anxiety [None]
  - Pain [None]
  - Pulmonary hypertension [None]
  - Deep vein thrombosis [None]

NARRATIVE: CASE EVENT DATE: 20220119
